FAERS Safety Report 9176468 (Version 1)
Quarter: 2013Q1

REPORT INFORMATION
  Report Type: Spontaneous
  Country: US (occurrence: None)
  Receive Date: 20130320
  Receipt Date: 20130320
  Transmission Date: 20140127
  Serious: Yes (Other)
  Sender: FDA-Public Use
  Company Number: None

PATIENT
  Age: 9 Year
  Sex: Male

DRUGS (2)
  1. SEROQUEL [Suspect]
     Indication: MOEBIUS II SYNDROME
     Dosage: 3 TID PO
     Dates: start: 201005
  2. SEROQUEL [Suspect]
     Dosage: 1 QD PO

REACTIONS (6)
  - Product substitution issue [None]
  - Agitation [None]
  - Dyskinesia [None]
  - Rash macular [None]
  - Abnormal behaviour [None]
  - Condition aggravated [None]
